FAERS Safety Report 10042185 (Version 1)
Quarter: 2014Q1

REPORT INFORMATION
  Report Type: Spontaneous
  Country: FI (occurrence: FI)
  Receive Date: 20140327
  Receipt Date: 20140327
  Transmission Date: 20141002
  Serious: Yes (Hospitalization)
  Sender: FDA-Public Use
  Company Number: FI-PERRIGO-14FI002970

PATIENT
  Age: 32 Year
  Sex: Female

DRUGS (5)
  1. RANITIDINE HYDROCHLORIDE 75 MG 156 [Suspect]
     Indication: DYSPEPSIA
     Dosage: UNKNOWN, UNKNOWN
     Route: 048
  2. METAMIZOLE [Suspect]
     Indication: ANALGESIC THERAPY
     Dosage: UNKNOWN, UNKNOWN
     Route: 065
  3. CEPHALOSPORIN ANTIBIOTICS [Suspect]
     Indication: SKIN IRRITATION
     Dosage: 500 MG, TID
     Route: 048
  4. ACETYLSALICYLIC ACID [Suspect]
     Indication: PLACENTAL DISORDER
     Dosage: UNKNOWN, UNKNOWN
     Route: 065
  5. PREDNISOLONE [Concomitant]
     Indication: SYSTEMIC LUPUS ERYTHEMATOSUS
     Dosage: 30 MG, QD
     Route: 048

REACTIONS (1)
  - Toxic epidermal necrolysis [Recovered/Resolved]
